FAERS Safety Report 21248697 (Version 1)
Quarter: 2022Q3

REPORT INFORMATION
  Report Type: Spontaneous
  Country: US (occurrence: US)
  Receive Date: 20220824
  Receipt Date: 20220824
  Transmission Date: 20221027
  Serious: Yes (Hospitalization, Other)
  Sender: FDA-Public Use
  Company Number: US-GLAXOSMITHKLINE-US2022GSK121730

PATIENT

DRUGS (2)
  1. VALACYCLOVIR HYDROCHLORIDE [Suspect]
     Active Substance: VALACYCLOVIR HYDROCHLORIDE
     Indication: Herpes zoster
     Dosage: 1 G, TID (SUPRATHERAPEUTIC DOSE)
  2. VALACYCLOVIR HYDROCHLORIDE [Suspect]
     Active Substance: VALACYCLOVIR HYDROCHLORIDE
     Indication: Antiviral treatment

REACTIONS (10)
  - Neurotoxicity [Recovering/Resolving]
  - Renal function test abnormal [Recovering/Resolving]
  - Incoherent [Recovering/Resolving]
  - Neurologic neglect syndrome [Recovering/Resolving]
  - Aphasia [Recovering/Resolving]
  - Confusional state [Recovering/Resolving]
  - Ocular discomfort [Recovering/Resolving]
  - Transient ischaemic attack [Recovering/Resolving]
  - Dizziness [Recovering/Resolving]
  - Dysarthria [Recovering/Resolving]
